FAERS Safety Report 7553413-3 (Version None)
Quarter: 2011Q2

REPORT INFORMATION
  Report Type: 
  Country: None (occurrence: None)
  Receive Date: 20110614
  Receipt Date: 20110614
  Transmission Date: 20111010
  Serious: Yes (Hospitalization)
  Sender: FDA-Public Use
  Company Number: None

PATIENT
  Age: 69 Year
  Sex: Male
  Weight: 76.1 kg

DRUGS (2)
  1. AZACITIDINE [Suspect]
     Indication: ACUTE MYELOID LEUKAEMIA
     Dosage: 25MG/M2 D1-D5
     Dates: start: 20110503, end: 20110507
  2. LENALIDOMIDE [Suspect]
     Indication: ACUTE MYELOID LEUKAEMIA
     Dosage: 50MG PO DAILY D1-28
     Dates: start: 20110503

REACTIONS (3)
  - DYSPNOEA [None]
  - CONDITION AGGRAVATED [None]
  - COUGH [None]
